FAERS Safety Report 24844676 (Version 1)
Quarter: 2025Q1

REPORT INFORMATION
  Report Type: Other
  Country: CA (occurrence: CA)
  Receive Date: 20250115
  Receipt Date: 20250115
  Transmission Date: 20250409
  Serious: Yes (Hospitalization, Other)
  Sender: PFIZER
  Company Number: CA-PFIZER INC-202500007583

PATIENT
  Age: 47 Year
  Sex: Female

DRUGS (12)
  1. LORAZEPAM [Suspect]
     Active Substance: LORAZEPAM
     Indication: Major depression
     Dosage: 1 MG, 2X/DAY
  2. LORAZEPAM [Suspect]
     Active Substance: LORAZEPAM
     Indication: Generalised anxiety disorder
     Dosage: 1 MG, 2X/DAY
  3. ARIPIPRAZOLE [Suspect]
     Active Substance: ARIPIPRAZOLE
     Indication: Schizoaffective disorder
  4. CLOZAPINE [Suspect]
     Active Substance: CLOZAPINE
     Indication: Schizoaffective disorder
     Dosage: 400 MG, 1X/DAY
  5. OLANZAPINE [Suspect]
     Active Substance: OLANZAPINE
     Indication: Schizoaffective disorder
  6. PALIPERIDONE [Suspect]
     Active Substance: PALIPERIDONE
     Indication: Schizoaffective disorder
  7. QUETIAPINE FUMARATE [Suspect]
     Active Substance: QUETIAPINE FUMARATE
     Indication: Schizoaffective disorder
     Dosage: 400 MG, 1X/DAY
  8. SERTRALINE [Suspect]
     Active Substance: SERTRALINE HYDROCHLORIDE
     Indication: Major depression
     Dosage: 175 MG, 1X/DAY
  9. SERTRALINE [Suspect]
     Active Substance: SERTRALINE HYDROCHLORIDE
     Indication: Generalised anxiety disorder
     Dosage: 175 MG, 1X/DAY
  10. SERTRALINE [Suspect]
     Active Substance: SERTRALINE HYDROCHLORIDE
     Dosage: 200 MG, 1X/DAY
  11. SERTRALINE [Suspect]
     Active Substance: SERTRALINE HYDROCHLORIDE
     Indication: Major depression
     Dosage: 200 MG, 1X/DAY
  12. SERTRALINE [Suspect]
     Active Substance: SERTRALINE HYDROCHLORIDE
     Indication: Generalised anxiety disorder

REACTIONS (9)
  - Anxiety [Recovering/Resolving]
  - Drug ineffective [Recovering/Resolving]
  - Dyskinesia [Recovering/Resolving]
  - Dystonia [Recovering/Resolving]
  - Head titubation [Recovering/Resolving]
  - Parkinsonism [Recovering/Resolving]
  - Psychotic disorder [Recovering/Resolving]
  - Tremor [Recovering/Resolving]
  - Type 2 diabetes mellitus [Recovering/Resolving]
